FAERS Safety Report 4620143-7 (Version None)
Quarter: 2005Q1

REPORT INFORMATION
  Report Type: 
  Country: None (occurrence: None)
  Receive Date: 20050324
  Receipt Date: 20050314
  Transmission Date: 20050727
  Serious: Yes (Death)
  Sender: FDA-Public Use
  Company Number: GB-2005-003762

PATIENT
  Sex: 0

DRUGS (1)
  1. FLUDARABINE PHOSPHATE [Suspect]

REACTIONS (1)
  - LACTIC ACIDOSIS [None]
